FAERS Safety Report 6019656-5 (Version None)
Quarter: 2008Q4

REPORT INFORMATION
  Report Type: 
  Country: None (occurrence: None)
  Receive Date: 20081224
  Receipt Date: 20081211
  Transmission Date: 20090506
  Serious: Yes (Hospitalization)
  Sender: FDA-Public Use
  Company Number: DE-GENENTECH-271640

PATIENT
  Sex: Female

DRUGS (5)
  1. BEVACIZUMAB [Suspect]
     Indication: COLON CANCER METASTATIC
     Dosage: 5 MG/KG, UNK
     Route: 042
     Dates: end: 20080930
  2. BEVACIZUMAB [Suspect]
     Dosage: UNK
     Dates: start: 20080930
  3. FLUOROURACIL [Suspect]
     Indication: COLON CANCER METASTATIC
     Dosage: 930 MG, 1/WEEK
     Route: 042
     Dates: start: 20080331
  4. OXALIPLATIN [Concomitant]
     Indication: DRUG USE FOR UNKNOWN INDICATION
  5. FOLINIC ACID [Concomitant]
     Indication: DRUG USE FOR UNKNOWN INDICATION

REACTIONS (3)
  - CYTOTOXIC CARDIOMYOPATHY [None]
  - DYSPNOEA [None]
  - HYPOAESTHESIA [None]
